FAERS Safety Report 26183425 (Version 1)
Quarter: 2025Q4

REPORT INFORMATION
  Report Type: Spontaneous
  Country: US (occurrence: US)
  Receive Date: 20251221
  Receipt Date: 20251221
  Transmission Date: 20260117
  Serious: Yes (Life-Threatening, Hospitalization, Other)
  Sender: CIPLA
  Company Number: US-CIPLA LTD.-2025US15969

PATIENT

DRUGS (1)
  1. BUPROPION [Suspect]
     Active Substance: BUPROPION
     Dosage: 6000 MILLIGRAM, SINGLE (SIXTY 100 MG TABLETS)
     Route: 048

REACTIONS (12)
  - Brugada syndrome [Unknown]
  - Electrocardiogram QT prolonged [Unknown]
  - Loss of consciousness [Unknown]
  - Apnoea [Unknown]
  - Hallucination, visual [Unknown]
  - Sinus tachycardia [Recovered/Resolved]
  - Hypotension [Unknown]
  - Agitation [Unknown]
  - Tremor [Unknown]
  - Vomiting [Unknown]
  - Nausea [Unknown]
  - Intentional overdose [Unknown]
